FAERS Safety Report 17929261 (Version 2)
Quarter: 2021Q2

REPORT INFORMATION
  Report Type: Spontaneous
  Country: CA (occurrence: CA)
  Receive Date: 20200623
  Receipt Date: 20210628
  Transmission Date: 20210717
  Serious: Yes (Hospitalization, Disabling, Other)
  Sender: FDA-Public Use
  Company Number: CA-TEVA-2020-CA-1791347

PATIENT
  Age: 57 Year
  Sex: Male

DRUGS (28)
  1. PENICILLIN G [Interacting]
     Active Substance: PENICILLIN G
     Indication: ANTIBIOTIC PROPHYLAXIS
     Route: 048
  2. WARFARIN [Interacting]
     Active Substance: WARFARIN
     Indication: PERIPHERAL VASCULAR DISORDER
     Route: 048
  3. ISONIAZID. [Concomitant]
     Active Substance: ISONIAZID
     Indication: MYCOBACTERIAL INFECTION
  4. PIPERACILLIN/TAZOBACTAM [Interacting]
     Active Substance: PIPERACILLIN SODIUM\TAZOBACTAM SODIUM
     Indication: ABSCESS NECK
     Route: 065
  5. IMIPENEM [Interacting]
     Active Substance: IMIPENEM
     Indication: MYCOBACTERIUM ABSCESSUS INFECTION
     Route: 065
  6. IMIPENEM [Interacting]
     Active Substance: IMIPENEM
     Indication: MYCOBACTERIAL INFECTION
     Route: 042
  7. PENICILLIN G [Interacting]
     Active Substance: PENICILLIN G
     Indication: DENTAL OPERATION
     Route: 065
  8. VANCOMYCIN HYDROCHLORIDE. [Interacting]
     Active Substance: VANCOMYCIN HYDROCHLORIDE
     Indication: CONDITION AGGRAVATED
     Route: 065
  9. ETHAMBUTOL [Interacting]
     Active Substance: ETHAMBUTOL HYDROCHLORIDE
     Indication: TUBERCULOSIS
     Route: 065
  10. MEROPENEM. [Interacting]
     Active Substance: MEROPENEM
     Indication: ABSCESS NECK
     Route: 065
  11. ETHAMBUTOL [Interacting]
     Active Substance: ETHAMBUTOL HYDROCHLORIDE
     Indication: MYCOBACTERIAL INFECTION
     Route: 042
  12. PYRAZINAMIDE. [Interacting]
     Active Substance: PYRAZINAMIDE
     Indication: TUBERCULOSIS
     Route: 065
  13. AMIKACIN SULFATE. [Interacting]
     Active Substance: AMIKACIN SULFATE
     Indication: MYCOBACTERIAL INFECTION
     Route: 065
  14. MEROPENEM. [Interacting]
     Active Substance: MEROPENEM
     Indication: CONDITION AGGRAVATED
     Dosage: 3 GRAM DAILY;
     Route: 042
  15. RIFAMPIN. [Interacting]
     Active Substance: RIFAMPIN
     Indication: MYCOBACTERIAL INFECTION
     Route: 065
  16. ISONIAZID. [Concomitant]
     Active Substance: ISONIAZID
     Indication: TUBERCULOSIS
  17. CILASTATIN/IMIPENEM [Interacting]
     Active Substance: CILASTATIN SODIUM\IMIPENEM
     Indication: MYCOBACTERIUM ABSCESSUS INFECTION
     Dosage: 1500 MILLIGRAM DAILY;
     Route: 042
  18. MEROPENEM. [Interacting]
     Active Substance: MEROPENEM
     Indication: BACTERIAL INFECTION
     Route: 065
  19. PYRAZINAMIDE. [Interacting]
     Active Substance: PYRAZINAMIDE
     Indication: MYCOBACTERIAL INFECTION
     Route: 065
  20. VANCOMYCIN HYDROCHLORIDE. [Interacting]
     Active Substance: VANCOMYCIN HYDROCHLORIDE
     Indication: ABSCESS NECK
     Dosage: 2.5 GRAM DAILY;
     Route: 042
  21. WARFARIN [Interacting]
     Active Substance: WARFARIN
     Indication: ANTICOAGULANT THERAPY
     Route: 048
  22. PIPERACILLIN/TAZOBACTAM [Interacting]
     Active Substance: PIPERACILLIN SODIUM\TAZOBACTAM SODIUM
     Indication: NONINFECTIVE SIALOADENITIS
     Dosage: 13.5 GRAM DAILY;
     Route: 042
  23. AMIKACIN SULFATE. [Interacting]
     Active Substance: AMIKACIN SULFATE
     Indication: MYCOBACTERIUM ABSCESSUS INFECTION
     Dosage: 900 MILLIGRAM DAILY;
     Route: 042
  24. RIFAMPIN. [Interacting]
     Active Substance: RIFAMPIN
     Indication: TUBERCULOSIS
     Route: 065
  25. CLARITHROMYCIN. [Suspect]
     Active Substance: CLARITHROMYCIN
     Indication: MYCOBACTERIUM ABSCESSUS INFECTION
     Route: 065
  26. CLARITHROMYCIN. [Interacting]
     Active Substance: CLARITHROMYCIN
     Indication: MYCOBACTERIAL INFECTION
     Dosage: 1000 MILLIGRAM DAILY;
     Route: 048
  27. VANCOMYCIN HYDROCHLORIDE. [Interacting]
     Active Substance: VANCOMYCIN HYDROCHLORIDE
     Indication: BACTERIAL INFECTION
     Route: 065
  28. TAZOBACTAM [Concomitant]
     Active Substance: TAZOBACTAM
     Indication: ABSCESS NECK
     Dosage: 13.5 GRAM DAILY;
     Route: 042

REACTIONS (8)
  - Labelled drug-drug interaction medication error [Recovered/Resolved]
  - Condition aggravated [Recovered/Resolved]
  - Drug interaction [Recovered/Resolved]
  - Gastrointestinal haemorrhage [Recovered/Resolved]
  - Potentiating drug interaction [Recovered/Resolved]
  - International normalised ratio increased [Recovered/Resolved]
  - Ototoxicity [Recovered/Resolved]
  - Drug ineffective [Recovered/Resolved]
